FAERS Safety Report 23311752 (Version 1)
Quarter: 2023Q4

REPORT INFORMATION
  Report Type: Spontaneous
  Country: GB (occurrence: GB)
  Receive Date: 20231219
  Receipt Date: 20231219
  Transmission Date: 20240110
  Serious: Yes (Disabling)
  Sender: FDA-Public Use
  Company Number: None

PATIENT
  Sex: Female

DRUGS (2)
  1. TRIAMCINOLONE [Suspect]
     Active Substance: TRIAMCINOLONE
     Indication: Product used for unknown indication
     Dosage: 20MG SINGLE INJECTION OF TRIAMCINOLONE HEXACETONIDE,;
  2. LIDOCAINE [Concomitant]
     Active Substance: LIDOCAINE
     Indication: Analgesic therapy

REACTIONS (2)
  - Skin hyperpigmentation [Not Recovered/Not Resolved]
  - Injection site atrophy [Not Recovered/Not Resolved]
